FAERS Safety Report 23876751 (Version 1)
Quarter: 2024Q2

REPORT INFORMATION
  Report Type: Spontaneous
  Country: US (occurrence: US)
  Receive Date: 20240521
  Receipt Date: 20240521
  Transmission Date: 20240715
  Serious: Yes (Other)
  Sender: FDA-Public Use
  Company Number: US-Hisun Pharmaceuticals-2157229

PATIENT
  Age: 64 Year
  Sex: Male

DRUGS (5)
  1. IRBESARTAN [Suspect]
     Active Substance: IRBESARTAN
     Indication: Blood pressure measurement
     Route: 048
  2. ASPIRIN [Concomitant]
     Active Substance: ASPIRIN
  3. FISH OIL [Concomitant]
     Active Substance: FISH OIL
  4. PRAVASTATIN [Concomitant]
     Active Substance: PRAVASTATIN
  5. Fexofenodine [Concomitant]

REACTIONS (3)
  - Choking [Recovered/Resolved]
  - Product physical consistency issue [Unknown]
  - Foreign body in throat [Recovered/Resolved]
